FAERS Safety Report 5669941-1 (Version None)
Quarter: 2008Q1

REPORT INFORMATION
  Report Type: 
  Country: None (occurrence: None)
  Receive Date: 20080317
  Receipt Date: 20080307
  Transmission Date: 20080703
  Serious: Yes (Hospitalization)
  Sender: FDA-Public Use
  Company Number: US-GILEAD-2008-0015487

PATIENT
  Sex: Female

DRUGS (1)
  1. TRUVADA [Suspect]
     Dosage: PATIENT ACCIDENTIALLY TOOK DOUBLE DOSE FOR 1-2 WEEKS
     Route: 065

REACTIONS (2)
  - OVERDOSE [None]
  - RENAL FAILURE ACUTE [None]
